FAERS Safety Report 5566232-4 (Version None)
Quarter: 2007Q4

REPORT INFORMATION
  Report Type: 
  Country: None (occurrence: None)
  Receive Date: 20071219
  Receipt Date: 20071211
  Transmission Date: 20080405
  Serious: Yes (Other)
  Sender: FDA-Public Use
  Company Number: ES-BRISTOL-MYERS SQUIBB COMPANY-14017644

PATIENT

DRUGS (1)
  1. CYCLOPHOSPHAMIDE [Suspect]
     Route: 042
     Dates: start: 20071210, end: 20071211

REACTIONS (1)
  - BRONCHOSPASM [None]
